FAERS Safety Report 8001348-4 (Version None)
Quarter: 2011Q4

REPORT INFORMATION
  Report Type: 
  Country: None (occurrence: None)
  Receive Date: 20111219
  Receipt Date: 20111205
  Transmission Date: 20120403
  Serious: Yes (Other)
  Sender: FDA-Public Use
  Company Number: 2011AP002968

PATIENT
  Age: 29 Year
  Sex: Female

DRUGS (2)
  1. PAROXETINE HYDROCHLORIDE [Suspect]
     Indication: DEPRESSION
     Dosage: 60 MG;QD;PO  : 20 MG;QD;PO
     Route: 048
  2. ESOMEPRAZOLE MAGNESIUM [Concomitant]

REACTIONS (2)
  - SHOCK [None]
  - MALAISE [None]
